FAERS Safety Report 7275368-1 (Version None)
Quarter: 2011Q1

REPORT INFORMATION
  Report Type: 
  Country: None (occurrence: None)
  Receive Date: 20110204
  Receipt Date: 20110124
  Transmission Date: 20110831
  Serious: Yes (Hospitalization)
  Sender: FDA-Public Use
  Company Number: US-ELI_LILLY_AND_COMPANY-US201101006099

PATIENT
  Age: 65 Year
  Sex: Female
  Weight: 48.299 kg

DRUGS (24)
  1. METHOTREXATE [Concomitant]
     Dosage: 20 MG, WEEKLY (1/W)
     Route: 048
     Dates: end: 20101116
  2. SOMA [Concomitant]
     Indication: ANXIETY
     Dosage: 175 MG, 3/D
     Route: 048
     Dates: start: 20100901
  3. LORAZEPAM [Concomitant]
     Indication: ANXIETY
     Dosage: 0.25 MG, 3/D
     Route: 048
     Dates: start: 20100630, end: 20100901
  4. PRAMIPEXOLE DIHYDROCHLORIDE [Concomitant]
     Indication: RESTLESS LEGS SYNDROME
     Dosage: 0.5 MG, DAILY (1/D)
     Dates: start: 20100101, end: 20100325
  5. METHOTREXATE [Concomitant]
     Indication: RHEUMATOID ARTHRITIS
     Dosage: 1 D/F, 2/D
     Route: 048
     Dates: start: 20100225
  6. EFFEXOR XR [Concomitant]
     Indication: HOT FLUSH
     Dosage: 150 MG, DAILY (1/D)
     Route: 048
     Dates: start: 20080101
  7. PREDNISONE [Concomitant]
     Dosage: UNK, UNKNOWN
     Dates: start: 20100112, end: 20100914
  8. FOLIC ACID [Concomitant]
     Indication: SUPPLEMENTATION THERAPY
     Dosage: UNK, UNKNOWN
     Dates: start: 20100225
  9. BENZTROPINE MESYLATE [Concomitant]
     Indication: AKATHISIA
     Dosage: 1 G, 2/D
     Route: 048
     Dates: start: 20100728
  10. CYMBALTA [Suspect]
     Indication: ANXIETY
     Dosage: 30 MG, DAILY (1/D)
     Route: 048
     Dates: start: 20100701, end: 20100901
  11. METHOCARBAMOL [Concomitant]
     Indication: MUSCLE RELAXANT THERAPY
     Dosage: 500 MG, AS NEEDED
     Route: 048
     Dates: start: 20090101
  12. MECLIZINE [Concomitant]
     Indication: AKATHISIA
     Dosage: 12.5 MG, 3/D
     Route: 048
     Dates: start: 20100809
  13. CYMBALTA [Suspect]
     Dosage: 60 MG, DAILY (1/D)
     Route: 048
     Dates: start: 20100901
  14. METHOTREXATE [Concomitant]
     Dosage: 10 MG, WEEKLY (1/W)
     Route: 048
  15. LYRICA [Concomitant]
     Indication: RESTLESS LEGS SYNDROME
     Dosage: 50 MG, 3/D
     Route: 048
     Dates: start: 20100513
  16. RISPERIDONE [Concomitant]
     Dosage: UNK, UNK
     Dates: start: 20100901, end: 20100914
  17. FERROUS SULFATE TAB [Concomitant]
     Dosage: UNK, UNKNOWN
     Dates: start: 20060101
  18. LORAZEPAM [Concomitant]
     Dosage: 2.5 MG, DAILY (1/D)
     Dates: start: 20100914
  19. ALBUTEROL [Concomitant]
     Indication: RHINITIS SEASONAL
     Dosage: UNK, UNKNOWN
     Dates: start: 20100517
  20. SEROQUEL [Concomitant]
     Indication: ANXIETY
     Dosage: 300 MG, 2/D
     Route: 048
     Dates: start: 20060101
  21. OMEPRAZOLE [Concomitant]
     Indication: GASTROOESOPHAGEAL REFLUX DISEASE
     Dosage: UNK, UNKNOWN
     Dates: start: 20090101
  22. PROMETHAZINE [Concomitant]
     Indication: NAUSEA
     Dates: start: 20090101
  23. LAMOTRIGINE [Concomitant]
     Indication: HALLUCINATION
     Dosage: 100 MG, DAILY (1/D)
     Route: 048
     Dates: start: 20100901
  24. LORTAB [Concomitant]
     Indication: RHEUMATOID ARTHRITIS
     Dosage: UNK, UNKNOWN
     Route: 048
     Dates: start: 20060101

REACTIONS (4)
  - PSYCHOTIC DISORDER [None]
  - WEIGHT DECREASED [None]
  - THYROXINE INCREASED [None]
  - DRUG SCREEN POSITIVE [None]
